FAERS Safety Report 19939181 (Version 2)
Quarter: 2022Q2

REPORT INFORMATION
  Report Type: Report from Study
  Country: IT (occurrence: IT)
  Receive Date: 20211011
  Receipt Date: 20220616
  Transmission Date: 20220720
  Serious: Yes (Other)
  Sender: FDA-Public Use
  Company Number: IT-ACCORD-239495

PATIENT

DRUGS (6)
  1. MELPHALAN [Suspect]
     Active Substance: MELPHALAN
     Indication: Plasma cell myeloma
     Dosage: 9 MILLIGRAM/SQ. METER, 8CYCLICAL
     Route: 065
  2. BORTEZOMIB [Suspect]
     Active Substance: BORTEZOMIB
     Indication: Product used for unknown indication
     Dosage: 46.8 MILLIGRAM/SQ. METER, 8CYCLICAL
     Route: 065
  3. BORTEZOMIB [Suspect]
     Active Substance: BORTEZOMIB
     Indication: Plasma cell myeloma
     Dosage: 1.3 MILLIGRAM/SQ. METER, CYCLICAL (1.3 MILLIGRAM/SQ. METER, CYCLE (DURING CYCLES 1-9) )
     Route: 058
  4. BORTEZOMIB [Suspect]
     Active Substance: BORTEZOMIB
     Dosage: 46.8 MILLIGRAM, CYCLICAL
     Route: 065
  5. PREDNISONE [Suspect]
     Active Substance: PREDNISONE
     Indication: Plasma cell myeloma
     Dosage: 60 MILLIGRAM/SQ. METER, 8CYCLICAL
     Route: 065
  6. ACYCLOVIR [Suspect]
     Active Substance: ACYCLOVIR
     Indication: Herpes zoster
     Dosage: UNK
     Route: 048

REACTIONS (1)
  - Deep vein thrombosis [Unknown]
